FAERS Safety Report 9513348 (Version 1)
Quarter: 2013Q1

REPORT INFORMATION
  Report Type: Spontaneous
  Country: US (occurrence: None)
  Receive Date: 20130305
  Receipt Date: 20130305
  Transmission Date: 20140127
  Serious: Yes (Hospitalization, Other)
  Sender: FDA-Public Use
  Company Number: 163-21880-12050891

PATIENT
  Age: 85 Year
  Sex: Female
  Weight: 64.14 kg

DRUGS (2)
  1. REVLIMID [Suspect]
     Indication: MYELODYSPLASTIC SYNDROME
     Route: 048
     Dates: start: 20120416
  2. ASA (ACETYLSALICYLIC ACID) [Concomitant]

REACTIONS (5)
  - Pneumonia [None]
  - Pyrexia [None]
  - Pyrexia [None]
  - Haemoglobin decreased [None]
  - Diarrhoea [None]
